FAERS Safety Report 6495679-7 (Version None)
Quarter: 2009Q4

REPORT INFORMATION
  Report Type: 
  Country: None (occurrence: None)
  Receive Date: 20091214
  Receipt Date: 20090730
  Transmission Date: 20100525
  Serious: No
  Sender: FDA-Public Use
  Company Number: US-BRISTOL-MYERS SQUIBB COMPANY-14723183

PATIENT
  Age: 66 Year
  Sex: Female
  Weight: 91 kg

DRUGS (5)
  1. ABILIFY [Suspect]
     Indication: DEPRESSION
     Dosage: DURATION OF THERAPY: 6WKS AGO
     Dates: start: 20090101
  2. ABILIFY [Suspect]
     Indication: NERVOUSNESS
     Dosage: DURATION OF THERAPY: 6WKS AGO
     Dates: start: 20090101
  3. CARBIDOPA-LEVODOPA [Concomitant]
  4. ZOLOFT [Concomitant]
  5. LAMOTRIGINE [Concomitant]

REACTIONS (1)
  - MUSCULOSKELETAL CHEST PAIN [None]
